FAERS Safety Report 10380606 (Version 1)
Quarter: 2014Q1

REPORT INFORMATION
  Report Type: Spontaneous
  Country: US (occurrence: None)
  Receive Date: 20140306
  Receipt Date: 20140306
  Transmission Date: 20141002
  Serious: Yes (Other)
  Sender: FDA-Public Use
  Company Number: 163-21880-13094219

PATIENT
  Age: 66 Year
  Sex: Female

DRUGS (2)
  1. REVLIMID [Suspect]
     Indication: PLASMA CELL MYELOMA
     Dosage: TEMPORARILY INTERRUPTED; 28 IN 28 D
     Route: 048
     Dates: start: 20120822
  2. STEROIDS (OTHER THERAPEUTIC PRODUCTS) [Concomitant]

REACTIONS (3)
  - Blood glucose increased [None]
  - Full blood count decreased [None]
  - Chest pain [None]
